FAERS Safety Report 8105359-X (Version None)
Quarter: 2012Q1

REPORT INFORMATION
  Report Type: 
  Country: None (occurrence: None)
  Receive Date: 20120201
  Receipt Date: 20120125
  Transmission Date: 20120608
  Serious: Yes (Hospitalization)
  Sender: FDA-Public Use
  Company Number: PHHY2012DE007172

PATIENT
  Sex: Female

DRUGS (2)
  1. OPIPRAMOL [Concomitant]
     Dosage: UNK UKN, UNK
     Route: 048
     Dates: start: 20110101, end: 20111201
  2. GILENYA [Suspect]
     Indication: MULTIPLE SCLEROSIS
     Dosage: 0.5 MG, QD
     Route: 048
     Dates: start: 20110701

REACTIONS (4)
  - ANGINA PECTORIS [None]
  - PALPITATIONS [None]
  - ATRIOVENTRICULAR BLOCK FIRST DEGREE [None]
  - CHEST DISCOMFORT [None]
